FAERS Safety Report 24448499 (Version 2)
Quarter: 2024Q4

REPORT INFORMATION
  Report Type: Spontaneous
  Country: DE (occurrence: DE)
  Receive Date: 20241017
  Receipt Date: 20241026
  Transmission Date: 20250115
  Serious: Yes (Death, Other)
  Sender: AUROBINDO
  Company Number: DE-002147023-NVSC2022DE296697

PATIENT
  Sex: Female

DRUGS (3)
  1. FULVESTRANT [Suspect]
     Active Substance: FULVESTRANT
     Indication: Hormone receptor positive HER2 negative breast cancer
     Dosage: 500 MG, Q4W
     Route: 030
     Dates: start: 20200610, end: 20220323
  2. KISQALI [Suspect]
     Active Substance: RIBOCICLIB
     Indication: Hormone receptor positive HER2 negative breast cancer
     Dosage: 600 MILLIGRAM, ONCE A DAY (REGIMEN 21 DAYS INTAKE, 7 DAYS PAUSE)
     Route: 048
  3. AFINITOR [Suspect]
     Active Substance: EVEROLIMUS
     Indication: Hormone receptor positive HER2 negative breast cancer
     Dosage: 5 MILLIGRAM, ONCE A DAY
     Route: 048

REACTIONS (5)
  - Neoplasm progression [Fatal]
  - Hormone receptor positive HER2 negative breast cancer [Not Recovered/Not Resolved]
  - Malignant neoplasm progression [Not Recovered/Not Resolved]
  - Metastases to liver [Recovered/Resolved with Sequelae]
  - General physical health deterioration [Not Recovered/Not Resolved]

NARRATIVE: CASE EVENT DATE: 20211109
